FAERS Safety Report 7473252-1 (Version None)
Quarter: 2011Q2

REPORT INFORMATION
  Report Type: 
  Country: None (occurrence: None)
  Receive Date: 20110503
  Receipt Date: 20110421
  Transmission Date: 20111010
  Serious: Yes (Death, Hospitalization, Other)
  Sender: FDA-Public Use
  Company Number: 2010AC000473

PATIENT
  Age: 86 Year
  Sex: Female

DRUGS (8)
  1. CARDIZEM [Concomitant]
  2. DIGOXIN [Suspect]
     Indication: SUPRAVENTRICULAR EXTRASYSTOLES
     Dosage: 0.125 MG;QD;PO
     Route: 048
     Dates: start: 19950101, end: 19960201
  3. PROCARDIA [Concomitant]
  4. TOPROL-XL [Concomitant]
  5. COUMADIN [Concomitant]
  6. RESTORIL [Concomitant]
  7. DIGOXIN [Suspect]
     Dosage: 0.25 MG;QD;PO
     Route: 048
     Dates: start: 20060501, end: 20080131
  8. LASIX [Concomitant]

REACTIONS (14)
  - FATIGUE [None]
  - TRICUSPID VALVE INCOMPETENCE [None]
  - DECREASED APPETITE [None]
  - ATRIAL FIBRILLATION [None]
  - MITRAL VALVE CALCIFICATION [None]
  - PLEURAL EFFUSION [None]
  - ARTHROPATHY [None]
  - DIZZINESS [None]
  - CARDIOVASCULAR DISORDER [None]
  - VENTRICULAR HYPOKINESIA [None]
  - AORTIC VALVE SCLEROSIS [None]
  - CARDIAC FLUTTER [None]
  - PALPITATIONS [None]
  - PERIORBITAL HAEMATOMA [None]
